FAERS Safety Report 8530373-X (Version None)
Quarter: 2012Q3

REPORT INFORMATION
  Report Type: 
  Country: None (occurrence: None)
  Receive Date: 20120723
  Receipt Date: 20120709
  Transmission Date: 20120928
  Serious: No
  Sender: FDA-Public Use
  Company Number: US-009507513-2012SP026697

PATIENT

DRUGS (4)
  1. PEG-INTRON [Suspect]
     Dosage: 0.5 ML, QW
     Dates: start: 20120401
  2. NAPROXEN [Concomitant]
  3. PROZAC [Concomitant]
  4. OMEPRAZOLE [Concomitant]

REACTIONS (2)
  - DRUG DOSE OMISSION [None]
  - INSOMNIA [None]
